FAERS Safety Report 14446246 (Version 1)
Quarter: 2018Q1

REPORT INFORMATION
  Report Type: Spontaneous
  Country: FR (occurrence: FR)
  Receive Date: 20180126
  Receipt Date: 20180126
  Transmission Date: 20180509
  Serious: Yes (Life-Threatening)
  Sender: FDA-Public Use
  Company Number: FR-CONCORDIA PHARMACEUTICALS INC.-E2B_00009565

PATIENT
  Age: 56 Year
  Sex: Male
  Weight: 83 kg

DRUGS (3)
  1. PREDNISOLONE. [Suspect]
     Active Substance: PREDNISOLONE
     Indication: COUGH
     Route: 048
     Dates: start: 20170923, end: 20170929
  2. AMOXICILLINE TRIHYDRATEE [Concomitant]
     Route: 048
     Dates: start: 20170923, end: 20170929
  3. LYRICA 50 MG, G?LULE [Concomitant]
     Indication: TOXIC NEUROPATHY
     Route: 048

REACTIONS (2)
  - Infection [Recovered/Resolved]
  - Condition aggravated [Recovered/Resolved]

NARRATIVE: CASE EVENT DATE: 20170929
